FAERS Safety Report 8809139 (Version 1)
Quarter: 2012Q4

REPORT INFORMATION
  Report Type: Spontaneous
  Country: DK (occurrence: None)
  Receive Date: 20120920
  Receipt Date: 20120920
  Transmission Date: 20130627
  Serious: Yes (Other)
  Sender: FDA-Public Use
  Company Number: 2012MA011385

PATIENT
  Age: 27 Year
  Sex: Female

DRUGS (2)
  1. NAPROXEN [Suspect]
     Dates: start: 20120816, end: 20120820
  2. FLUOXETINE [Suspect]

REACTIONS (1)
  - Hallucination [None]
